FAERS Safety Report 8446407-7 (Version None)
Quarter: 2012Q2

REPORT INFORMATION
  Report Type: 
  Country: None (occurrence: None)
  Receive Date: 20120618
  Receipt Date: 20120307
  Transmission Date: 20120825
  Serious: Yes (Other)
  Sender: FDA-Public Use
  Company Number: US-TEVA-324847USA

PATIENT
  Age: 68 Year

DRUGS (1)
  1. ACTIQ [Suspect]
     Route: 002
     Dates: start: 20111101

REACTIONS (4)
  - STOMATITIS [None]
  - GINGIVAL INFECTION [None]
  - TOOTH DISORDER [None]
  - DRUG PRESCRIBING ERROR [None]
